FAERS Safety Report 14392645 (Version 1)
Quarter: 2018Q1

REPORT INFORMATION
  Report Type: Spontaneous
  Country: US (occurrence: US)
  Receive Date: 20180112
  Receipt Date: 20180112
  Transmission Date: 20180509
  Serious: Yes (Disabling)
  Sender: FDA-Public Use
  Company Number: None

PATIENT
  Sex: Male
  Weight: 117 kg

DRUGS (1)
  1. ZICAM COLD REMEDY NASAL SWABS (HOMEOPATHICS) [Suspect]
     Active Substance: HOMEOPATHICS\ZINC ACETATE\ZINC GLUCONATE
     Indication: NASAL CONGESTION
     Dosage: ?          OTHER STRENGTH:NOT STATED;QUANTITY:1 SWAB;OTHER ROUTE:INSIDE NASAL PASSAGE?

REACTIONS (1)
  - Anosmia [None]

NARRATIVE: CASE EVENT DATE: 20071001
